FAERS Safety Report 6315853-X (Version None)
Quarter: 2009Q3

REPORT INFORMATION
  Report Type: 
  Country: None (occurrence: None)
  Receive Date: 20090818
  Receipt Date: 20090804
  Transmission Date: 20100115
  Serious: Yes (Hospitalization)
  Sender: FDA-Public Use
  Company Number: 2008AL004073

PATIENT
  Age: 61 Year
  Sex: Female

DRUGS (27)
  1. DIGOXIN [Suspect]
     Dosage: 0.25MG, DAILY, PO
     Route: 048
     Dates: end: 20080501
  2. CELEXA [Concomitant]
  3. COMBIVENT [Concomitant]
  4. GLIPIZIDE [Concomitant]
  5. NEXIUM [Concomitant]
  6. EFFEXOR [Concomitant]
  7. FUROSEMIDE [Concomitant]
  8. GLUCOPHAGE [Concomitant]
  9. NOVOLIN R [Concomitant]
  10. NITROGLYCERIN [Concomitant]
  11. TOPROL-XL [Concomitant]
  12. PLAVIX [Concomitant]
  13. ASPIRIN [Concomitant]
  14. CARDIZEM [Concomitant]
  15. ZOCOR [Concomitant]
  16. VITAMIN E [Concomitant]
  17. LORAZEPAM [Concomitant]
  18. DILAUDID [Concomitant]
  19. CLOPIDOGREL [Concomitant]
  20. TOPROL-XL [Concomitant]
  21. DILTIAZEM [Concomitant]
  22. LIPITOR [Concomitant]
  23. EFFEXOR [Concomitant]
  24. ACTOS [Concomitant]
  25. METFORMIN HCL [Concomitant]
  26. FENTANYL TRANSDERMAL SYSTEM [Concomitant]
  27. MULTI-VITAMIN [Concomitant]

REACTIONS (44)
  - ABASIA [None]
  - ANAEMIA [None]
  - ANAL SPHINCTER ATONY [None]
  - ANGINA PECTORIS [None]
  - ANXIETY [None]
  - APHASIA [None]
  - ARTHRALGIA [None]
  - BACK PAIN [None]
  - BEDRIDDEN [None]
  - BENIGN CARDIAC NEOPLASM [None]
  - BRONCHITIS [None]
  - CARDIAC FAILURE CONGESTIVE [None]
  - CARDIAC STRESS TEST ABNORMAL [None]
  - CARDIOACTIVE DRUG LEVEL INCREASED [None]
  - CHEST PAIN [None]
  - CHRONIC OBSTRUCTIVE PULMONARY DISEASE [None]
  - CONFUSIONAL STATE [None]
  - COUGH [None]
  - DIARRHOEA [None]
  - DIZZINESS [None]
  - DYSPNOEA [None]
  - DYSSTASIA [None]
  - ECONOMIC PROBLEM [None]
  - FALL [None]
  - FLUID RETENTION [None]
  - GASTROINTESTINAL HAEMORRHAGE [None]
  - HAEMARTHROSIS [None]
  - HAEMORRHOIDS [None]
  - HALLUCINATION [None]
  - HEART RATE DECREASED [None]
  - ILL-DEFINED DISORDER [None]
  - JOINT INJURY [None]
  - LIPOMATOUS HYPERTROPHY OF THE INTERATRIAL SEPTUM [None]
  - LIVER DISORDER [None]
  - MELAENA [None]
  - MULTIPLE INJURIES [None]
  - MUSCULAR WEAKNESS [None]
  - NAUSEA [None]
  - PAIN [None]
  - POLYP [None]
  - RECTAL HAEMORRHAGE [None]
  - THERAPEUTIC AGENT TOXICITY [None]
  - TRANSIENT ISCHAEMIC ATTACK [None]
  - VOMITING [None]
